FAERS Safety Report 5712523-3 (Version None)
Quarter: 2008Q2

REPORT INFORMATION
  Report Type: 
  Country: None (occurrence: None)
  Receive Date: 20080418
  Receipt Date: 20080407
  Transmission Date: 20081010
  Serious: Yes (Hospitalization)
  Sender: FDA-Public Use
  Company Number: PAR_02099_2008

PATIENT
  Sex: Female
  Weight: 36.2878 kg

DRUGS (2)
  1. MEGACE ES [Suspect]
     Indication: DECREASED APPETITE
     Dosage: 1 DF 1D IN THE MORNING ORAL
     Route: 048
     Dates: start: 20080101, end: 20080128
  2. ZOLOFT [Concomitant]

REACTIONS (10)
  - ABNORMAL BEHAVIOUR [None]
  - ANGER [None]
  - CONFUSIONAL STATE [None]
  - FLUID INTAKE REDUCED [None]
  - MOOD SWINGS [None]
  - NAUSEA [None]
  - ORAL INTAKE REDUCED [None]
  - PAIN [None]
  - SEDATION [None]
  - SPEECH DISORDER [None]
